FAERS Safety Report 18964765 (Version 1)
Quarter: 2021Q1

REPORT INFORMATION
  Report Type: Spontaneous
  Country: US (occurrence: US)
  Receive Date: 20210303
  Receipt Date: 20210303
  Transmission Date: 20210420
  Serious: No
  Sender: FDA-Public Use
  Company Number: US-AMNEAL PHARMACEUTICALS-2020-AMRX-00837

PATIENT
  Age: 65 Year
  Sex: Male

DRUGS (1)
  1. RYTARY [Suspect]
     Active Substance: CARBIDOPA\LEVODOPA
     Indication: PARKINSON^S DISEASE
     Dosage: 4 CAPSULES, TID
     Route: 065
     Dates: start: 20200206, end: 20200313

REACTIONS (4)
  - Drug ineffective [Unknown]
  - On and off phenomenon [Unknown]
  - Tremor [Unknown]
  - Gait inability [Unknown]

NARRATIVE: CASE EVENT DATE: 202002
